FAERS Safety Report 12266652 (Version 1)
Quarter: 2016Q2

REPORT INFORMATION
  Report Type: Spontaneous
  Country: US (occurrence: US)
  Receive Date: 20160414
  Receipt Date: 20160414
  Transmission Date: 20160815
  Serious: Yes (Other)
  Sender: FDA-Public Use
  Company Number: US-TEVA-586067USA

PATIENT
  Age: 66 Year
  Sex: Male

DRUGS (1)
  1. GABAPENTIN. [Suspect]
     Active Substance: GABAPENTIN
     Indication: PAIN
     Route: 065

REACTIONS (8)
  - Dizziness [Unknown]
  - Therapeutic response unexpected [Unknown]
  - Fall [Unknown]
  - Pain [Unknown]
  - Prescribed overdose [Unknown]
  - Confusional state [Unknown]
  - Gait disturbance [Unknown]
  - Distractibility [Unknown]
